FAERS Safety Report 9908052 (Version 2)
Quarter: 2015Q4

REPORT INFORMATION
  Report Type: Report from Study
  Country: US (occurrence: US)
  Receive Date: 20140219
  Receipt Date: 20151211
  Transmission Date: 20160305
  Serious: Yes (Other)
  Sender: FDA-Public Use
  Company Number: US-ROCHE-1350626

PATIENT
  Sex: Female

DRUGS (2)
  1. AVASTIN [Suspect]
     Active Substance: BEVACIZUMAB
     Indication: NEOVASCULAR AGE-RELATED MACULAR DEGENERATION
     Route: 050
  2. BACTRIM [Suspect]
     Active Substance: SULFAMETHOXAZOLE\TRIMETHOPRIM
     Indication: PRODUCT USED FOR UNKNOWN INDICATION
     Route: 065

REACTIONS (9)
  - Metamorphopsia [Unknown]
  - Vitreous floaters [Unknown]
  - Dry eye [Unknown]
  - Off label use [Unknown]
  - Drug hypersensitivity [Unknown]
  - Detachment of retinal pigment epithelium [Unknown]
  - Eye irritation [Unknown]
  - Intraocular pressure increased [Unknown]
  - Vitreous detachment [Unknown]
